FAERS Safety Report 8468743 (Version 5)
Quarter: 2014Q1

REPORT INFORMATION
  Report Type: Spontaneous
  Country: US (occurrence: US)
  Receive Date: 20120320
  Receipt Date: 20140127
  Transmission Date: 20141002
  Serious: Yes (Hospitalization, Disabling, Other)
  Sender: FDA-Public Use
  Company Number: US-ASTRAZENECA-2011SE41566

PATIENT
  Age: 53 Year
  Sex: Female

DRUGS (27)
  1. NEXIUM [Suspect]
     Indication: GASTROOESOPHAGEAL REFLUX DISEASE
     Route: 048
     Dates: start: 20021214
  2. NEXIUM [Suspect]
     Indication: GASTROOESOPHAGEAL REFLUX DISEASE
     Route: 048
     Dates: start: 2006, end: 201009
  3. NEXIUM [Suspect]
     Indication: GASTROOESOPHAGEAL REFLUX DISEASE
     Route: 048
     Dates: end: 2011
  4. NEXIUM [Suspect]
     Indication: GASTROOESOPHAGEAL REFLUX DISEASE
     Route: 048
     Dates: start: 20070925
  5. PRILOSEC OTC [Suspect]
     Indication: GASTROOESOPHAGEAL REFLUX DISEASE
     Route: 048
     Dates: start: 1990
  6. CALCIUM [Concomitant]
     Dosage: DOUBLE DOSE
     Dates: start: 2009
  7. PREVACID [Concomitant]
     Dates: start: 1990
  8. ZANTAC [Concomitant]
     Dates: start: 1990
  9. PAXIL [Concomitant]
     Indication: ANXIETY
  10. PAXIL [Concomitant]
     Indication: DEPRESSION
  11. PAXIL [Concomitant]
     Indication: EMOTIONAL DISTRESS
  12. SYMBICORT [Concomitant]
     Indication: ASTHMA
  13. CELABREX [Concomitant]
  14. AMLODIPINE [Concomitant]
     Dates: start: 20080804
  15. GEMFIBROZIL [Concomitant]
     Dates: start: 20080804
  16. PROAIR HFA [Concomitant]
     Dates: start: 20080804
  17. BEXTRA [Concomitant]
     Route: 048
     Dates: start: 20030522
  18. TIAZAC [Concomitant]
     Route: 048
     Dates: start: 20030403
  19. CLONAZEPAM [Concomitant]
     Indication: NERVOUSNESS
     Route: 048
     Dates: start: 20030403
  20. DEPAKOTE [Concomitant]
     Indication: MOOD SWINGS
     Route: 048
     Dates: start: 20030327
  21. KETOROLAC [Concomitant]
     Route: 048
     Dates: start: 20021226
  22. ISOSORBIDE MONONITRATE [Concomitant]
     Indication: CARDIOVASCULAR INSUFFICIENCY
     Route: 048
     Dates: start: 20020716
  23. METOCLOPRAMIDE [Concomitant]
     Route: 048
     Dates: start: 20040916
  24. TOPROL XL [Concomitant]
     Route: 048
     Dates: start: 20040821
  25. PREDNISONE [Concomitant]
     Route: 048
     Dates: start: 20050803
  26. TIZANIDINE [Concomitant]
     Route: 048
     Dates: start: 20051209
  27. FAMOTIDINE [Concomitant]
     Route: 048
     Dates: start: 20060417

REACTIONS (17)
  - Cerebrovascular accident [Unknown]
  - Arthropathy [Unknown]
  - Patella fracture [Unknown]
  - Osteomyelitis [Unknown]
  - Osteoarthritis [Unknown]
  - Cellulitis [Unknown]
  - Arthrofibrosis [Unknown]
  - Osteoporosis [Unknown]
  - Bone disorder [Unknown]
  - Vitamin D deficiency [Unknown]
  - Emotional distress [Unknown]
  - Anxiety [Unknown]
  - Ankle fracture [Unknown]
  - Scoliosis [Unknown]
  - Arthritis [Unknown]
  - Cataract [Unknown]
  - Depression [Unknown]
